FAERS Safety Report 7718506-6 (Version None)
Quarter: 2011Q3

REPORT INFORMATION
  Report Type: 
  Country: None (occurrence: None)
  Receive Date: 20110830
  Receipt Date: 20110826
  Transmission Date: 20111222
  Serious: No
  Sender: FDA-Public Use
  Company Number: US-PFIZER INC-2011199416

PATIENT
  Sex: Female
  Weight: 56.7 kg

DRUGS (1)
  1. PREMARIN [Suspect]
     Indication: HOT FLUSH
     Dosage: 0.3 MG, 1X/DAY
     Route: 048
     Dates: start: 19860101

REACTIONS (2)
  - HOT FLUSH [None]
  - HYPERHIDROSIS [None]
